FAERS Safety Report 9150085 (Version 1)
Quarter: 2013Q1

REPORT INFORMATION
  Report Type: Spontaneous
  Country: IT (occurrence: None)
  Receive Date: 20130131
  Receipt Date: 20130131
  Transmission Date: 20140127
  Serious: Yes (Hospitalization)
  Sender: FDA-Public Use
  Company Number: 003025

PATIENT
  Age: 20 Year
  Sex: Male

DRUGS (1)
  1. FOSCAVIR [Suspect]
     Dosage: INTRAVENOUS (NOT OTHERWISE SPECIFIED)
     Route: 042
     Dates: start: 20130114

REACTIONS (2)
  - Graft versus host disease [None]
  - Pneumonia cytomegaloviral [None]
